FAERS Safety Report 11513650 (Version 1)
Quarter: 2015Q3

REPORT INFORMATION
  Report Type: Spontaneous
  Country: US (occurrence: US)
  Receive Date: 20150903
  Receipt Date: 20150903
  Transmission Date: 20151125
  Serious: No
  Sender: FDA-Public Use
  Company Number: US-ELI_LILLY_AND_COMPANY-US201211005502

PATIENT
  Sex: Female

DRUGS (3)
  1. DIOVAN HCT [Concomitant]
     Active Substance: HYDROCHLOROTHIAZIDE\VALSARTAN
     Dosage: UNK, UNKNOWN
     Route: 065
  2. CYMBALTA [Suspect]
     Active Substance: DULOXETINE HYDROCHLORIDE
     Indication: PAIN IN EXTREMITY
     Dosage: 30 MG, QD
     Route: 065
     Dates: start: 201210
  3. IBUPROFEN. [Concomitant]
     Active Substance: IBUPROFEN
     Dosage: UNK, PRN
     Route: 065

REACTIONS (8)
  - Withdrawal syndrome [Unknown]
  - Dizziness [Unknown]
  - Back pain [Unknown]
  - Malaise [Unknown]
  - Neck pain [Unknown]
  - Myalgia [Unknown]
  - Muscle tightness [Unknown]
  - Nausea [Unknown]
